FAERS Safety Report 15167056 (Version 1)
Quarter: 2018Q3

REPORT INFORMATION
  Report Type: Spontaneous
  Country: NL (occurrence: NL)
  Receive Date: 20180719
  Receipt Date: 20180719
  Transmission Date: 20181010
  Serious: Yes (Death, Life-Threatening, Hospitalization, Disabling)
  Sender: FDA-Public Use
  Company Number: PHHY2018NL049553

PATIENT
  Age: 82 Year
  Sex: Male

DRUGS (2)
  1. HYDROXYCHLOROQUINE [Concomitant]
     Active Substance: HYDROXYCHLOROQUINE
     Indication: PRODUCT USED FOR UNKNOWN INDICATION
     Dosage: 200 MG, Q12H
     Route: 065
     Dates: start: 20171018
  2. METHOTREXATE (METHOTREXATE SODIUM) [Suspect]
     Active Substance: METHOTREXATE SODIUM
     Indication: PRODUCT USED FOR UNKNOWN INDICATION
     Dosage: 30 MG, QW
     Route: 065
     Dates: start: 20171211, end: 20180313

REACTIONS (8)
  - Nausea [Fatal]
  - Multiple organ dysfunction syndrome [Fatal]
  - Dyspnoea [Fatal]
  - Herpes simplex pneumonia [Fatal]
  - Pyrexia [Fatal]
  - Decreased appetite [Fatal]
  - Fatigue [Fatal]
  - Malaise [Fatal]

NARRATIVE: CASE EVENT DATE: 20180313
